FAERS Safety Report 14834444 (Version 1)
Quarter: 2018Q2

REPORT INFORMATION
  Report Type: Spontaneous
  Country: HR (occurrence: HR)
  Receive Date: 20180501
  Receipt Date: 20180501
  Transmission Date: 20180711
  Serious: Yes (Other)
  Sender: FDA-Public Use
  Company Number: HR-PFIZER INC-2018173321

PATIENT
  Sex: Female

DRUGS (3)
  1. PROPRANOLOL SANDOZ [Suspect]
     Active Substance: PROPRANOLOL HYDROCHLORIDE
     Dosage: 6 G, 1X/DAY
     Route: 048
     Dates: start: 20171223, end: 20171223
  2. HELEX [Suspect]
     Active Substance: ALPRAZOLAM
     Dosage: UNK
     Route: 048
     Dates: start: 20171223, end: 20171223
  3. XANAX [Suspect]
     Active Substance: ALPRAZOLAM
     Dosage: UNK
     Route: 048
     Dates: start: 20171223, end: 20171223

REACTIONS (5)
  - Irregular breathing [Unknown]
  - Suicide attempt [Unknown]
  - Bradycardia [Unknown]
  - Intentional overdose [Unknown]
  - Loss of consciousness [Unknown]

NARRATIVE: CASE EVENT DATE: 20171224
